FAERS Safety Report 9687331 (Version 3)
Quarter: 2014Q1

REPORT INFORMATION
  Report Type: Spontaneous
  Country: US (occurrence: US)
  Receive Date: 20131114
  Receipt Date: 20140123
  Transmission Date: 20141002
  Serious: Yes (Hospitalization)
  Sender: FDA-Public Use
  Company Number: US-BIOGENIDEC-2013BI106874

PATIENT
  Age: 62 Year
  Sex: Female

DRUGS (9)
  1. AVONEX [Suspect]
     Indication: MULTIPLE SCLEROSIS
     Route: 030
     Dates: start: 20020610, end: 201310
  2. AVONEX [Suspect]
     Indication: MULTIPLE SCLEROSIS
     Route: 030
  3. AMPYRA [Concomitant]
     Indication: GAIT DISTURBANCE
     Route: 048
     Dates: start: 201003, end: 201306
  4. BONIVA [Concomitant]
     Indication: OSTEOPOROSIS
     Route: 042
     Dates: start: 2013
  5. NORVASC [Concomitant]
     Indication: HYPERTENSION
     Route: 048
     Dates: start: 201306
  6. B COMPLEX [Concomitant]
     Indication: VITAMIN B12 DEFICIENCY
     Route: 048
     Dates: start: 2002
  7. VITAMIN D [Concomitant]
     Indication: VITAMIN D DECREASED
     Route: 048
     Dates: start: 2009
  8. CALCIUM PLUS VITAMIN D [Concomitant]
     Indication: VITAMIN D DECREASED
     Route: 048
     Dates: start: 2002
  9. CALCIUM PLUS VITAMIN D [Concomitant]
     Indication: MENOPAUSE
     Route: 048
     Dates: start: 2002

REACTIONS (9)
  - Renal cancer stage IV [Not Recovered/Not Resolved]
  - Terminal state [Unknown]
  - Irritability [Recovered/Resolved]
  - Nasopharyngitis [Recovered/Resolved]
  - Gait disturbance [Recovered/Resolved]
  - Depression [Recovered/Resolved]
  - White blood cell count decreased [Unknown]
  - Malaise [Recovered/Resolved]
  - Muscular weakness [Recovered/Resolved]
